FAERS Safety Report 7383454-0 (Version None)
Quarter: 2011Q1

REPORT INFORMATION
  Report Type: 
  Country: None (occurrence: None)
  Receive Date: 20110324
  Receipt Date: 20110324
  Transmission Date: 20110831
  Serious: Yes (Hospitalization)
  Sender: FDA-Public Use
  Company Number: None

PATIENT
  Age: 49 Year
  Sex: Female
  Weight: 92.9874 kg

DRUGS (12)
  1. MAGNESIUM OXIDE [Concomitant]
  2. RADIATION [Concomitant]
  3. DEXAMETHASONE TAB [Suspect]
     Indication: BRAIN OEDEMA
     Dosage: 2MG BID PO
     Route: 048
     Dates: start: 20101230, end: 20110322
  4. ZOLPIDEM TARTRATE [Concomitant]
  5. MUCINEX [Concomitant]
  6. ARSENIC TRIOXIDE [Suspect]
     Indication: ANAPLASTIC ASTROCYTOMA
     Dosage: 18.653MG BI-WEEKLY IV DRIP
     Route: 041
     Dates: start: 20110124, end: 20110311
  7. KEPPRA [Concomitant]
  8. COMPAZINE [Concomitant]
  9. TEMODAR [Concomitant]
  10. POTASSIUM CHLORIDE [Concomitant]
  11. RITALIN [Concomitant]
  12. DELSYN COUGH SYRUP [Concomitant]

REACTIONS (7)
  - DEHYDRATION [None]
  - ASTHENIA [None]
  - CANDIDIASIS [None]
  - TACHYCARDIA [None]
  - BRAIN OEDEMA [None]
  - MYOPATHY [None]
  - COUGH [None]
